FAERS Safety Report 13798571 (Version 4)
Quarter: 2017Q4

REPORT INFORMATION
  Report Type: Spontaneous
  Country: CO (occurrence: CO)
  Receive Date: 20170727
  Receipt Date: 20171117
  Transmission Date: 20180320
  Serious: Yes (Hospitalization, Other)
  Sender: FDA-Public Use
  Company Number: CO-AEGERION PHARMACEUTICAL, INC-AEGR003061

PATIENT

DRUGS (5)
  1. METFORMIN [Concomitant]
     Active Substance: METFORMIN HYDROCHLORIDE
     Indication: PRODUCT USED FOR UNKNOWN INDICATION
  2. MYALEPT [Suspect]
     Active Substance: METRELEPTIN
     Dosage: 0.5 ML, QD (24 HOURS)
     Route: 058
     Dates: start: 20170301, end: 20170309
  3. GEMFIBROZIL. [Concomitant]
     Active Substance: GEMFIBROZIL
     Indication: PRODUCT USED FOR UNKNOWN INDICATION
  4. INSULIN GLARGINE [Concomitant]
     Active Substance: INSULIN GLARGINE
     Indication: PRODUCT USED FOR UNKNOWN INDICATION
  5. MYALEPT [Suspect]
     Active Substance: METRELEPTIN
     Indication: CONGENITAL GENERALISED LIPODYSTROPHY
     Dosage: 2.5 MG, QD
     Route: 058
     Dates: start: 20170301, end: 20170410

REACTIONS (16)
  - Cachexia [Unknown]
  - Major depression [Recovered/Resolved]
  - Decreased appetite [Recovered/Resolved]
  - Vomiting [Unknown]
  - Therapy cessation [Not Recovered/Not Resolved]
  - Drug ineffective [Unknown]
  - Mastication disorder [Unknown]
  - Jaw disorder [Unknown]
  - General physical health deterioration [Recovered/Resolved]
  - Rash [Recovered/Resolved]
  - Nausea [Unknown]
  - Feeding disorder [Recovered/Resolved]
  - Weight decreased [Recovered/Resolved]
  - Abdominal pain [Recovered/Resolved]
  - Mental disorder [Recovered/Resolved]
  - Diarrhoea [Recovered/Resolved]

NARRATIVE: CASE EVENT DATE: 2017
